FAERS Safety Report 12177932 (Version 1)
Quarter: 2016Q1

REPORT INFORMATION
  Report Type: Report from Study
  Country: BR (occurrence: BR)
  Receive Date: 20160315
  Receipt Date: 20160315
  Transmission Date: 20160526
  Serious: Yes (Other)
  Sender: FDA-Public Use
  Company Number: BR-ACTELION-A-CH2016-132651

PATIENT
  Age: 8 Year
  Sex: Male
  Weight: 22 kg

DRUGS (4)
  1. ZAVESCA [Suspect]
     Active Substance: MIGLUSTAT
     Dosage: 300 MG, QD
     Route: 048
  2. ZAVESCA [Suspect]
     Active Substance: MIGLUSTAT
     Indication: NIEMANN-PICK DISEASE
     Dosage: 100 MG, QD
     Route: 048
     Dates: start: 2012
  3. VALPROIC ACID. [Concomitant]
     Active Substance: VALPROIC ACID
  4. CLOMIPRAMINE [Concomitant]
     Active Substance: CLOMIPRAMINE
     Dosage: 25 MG, UNK

REACTIONS (6)
  - Gastrointestinal tube insertion [Unknown]
  - Seizure [Unknown]
  - Niemann-Pick disease [Unknown]
  - Dysphagia [Unknown]
  - Pneumonia aspiration [Unknown]
  - Disease progression [Unknown]

NARRATIVE: CASE EVENT DATE: 2014
